FAERS Safety Report 5251437-2 (Version None)
Quarter: 2007Q1

REPORT INFORMATION
  Report Type: 
  Country: None (occurrence: None)
  Receive Date: 20070228
  Receipt Date: 20060615
  Transmission Date: 20070707
  Serious: Yes (Other)
  Sender: FDA-Public Use
  Company Number: US-GLAXOSMITHKLINE-A0604859A

PATIENT
  Age: 47 Year
  Sex: Male

DRUGS (4)
  1. LAMICTAL [Suspect]
     Indication: PARTIAL SEIZURES
     Route: 048
     Dates: start: 20051015
  2. LAMICTAL [Suspect]
     Route: 048
     Dates: start: 20060508
  3. CLONAZEPAM [Concomitant]
  4. NASONEX [Concomitant]

REACTIONS (3)
  - ANXIETY [None]
  - CONVULSION [None]
  - DIZZINESS [None]
